FAERS Safety Report 4993747-X (Version None)
Quarter: 2006Q2

REPORT INFORMATION
  Report Type: 
  Country: None (occurrence: None)
  Receive Date: 20060503
  Receipt Date: 20060503
  Transmission Date: 20061013
  Serious: Yes (Other)
  Sender: FDA-Public Use
  Company Number: None

PATIENT
  Age: 43 Year
  Sex: Female
  Weight: 57.6068 kg

DRUGS (1)
  1. CIPROFLOXACIN [Suspect]
     Indication: FOOD POISONING
     Dosage: 500 MG BID PO
     Route: 048
     Dates: start: 20060424, end: 20060430

REACTIONS (1)
  - CLOSTRIDIUM DIFFICILE COLITIS [None]
